FAERS Safety Report 5776543-5 (Version None)
Quarter: 2008Q2

REPORT INFORMATION
  Report Type: 
  Country: None (occurrence: None)
  Receive Date: 20080616
  Receipt Date: 20080529
  Transmission Date: 20081010
  Serious: Yes (Other)
  Sender: FDA-Public Use
  Company Number: 8033173

PATIENT
  Age: 10 Year
  Sex: Male

DRUGS (2)
  1. EQUASYM [Suspect]
     Indication: ATTENTION DEFICIT/HYPERACTIVITY DISORDER
     Dosage: 10 MG PO
     Route: 048
     Dates: start: 20080423, end: 20080426
  2. AMITRIPTYLINE HCL [Concomitant]

REACTIONS (4)
  - ARTHRALGIA [None]
  - CONTUSION [None]
  - ERYTHEMA [None]
  - JOINT SWELLING [None]
